FAERS Safety Report 10244296 (Version 1)
Quarter: 2014Q2

REPORT INFORMATION
  Report Type: Spontaneous
  Country: IN (occurrence: None)
  Receive Date: 20140616
  Receipt Date: 20140616
  Transmission Date: 20141212
  Serious: Yes (Other)
  Sender: FDA-Public Use
  Company Number: AUR-APL-2014-06282

PATIENT
  Age: 57 Year
  Sex: Female

DRUGS (1)
  1. METFORMIN [Suspect]
     Indication: DIABETES MELLITUS

REACTIONS (8)
  - Carpal tunnel syndrome [None]
  - Musculoskeletal disorder [None]
  - Senile ankylosing vertebral hyperostosis [None]
  - Periarthritis [None]
  - Joint stiffness [None]
  - Myalgia [None]
  - Hypovitaminosis [None]
  - Vitamin D decreased [None]
